FAERS Safety Report 5819791-8 (Version None)
Quarter: 2008Q3

REPORT INFORMATION
  Report Type: 
  Country: None (occurrence: None)
  Receive Date: 20080723
  Receipt Date: 20080713
  Transmission Date: 20090109
  Serious: Yes (Other)
  Sender: FDA-Public Use
  Company Number: DE-GILEAD-2008-0017304

PATIENT
  Sex: Female
  Weight: 60 kg

DRUGS (4)
  1. TRUVADA [Suspect]
     Indication: HIV INFECTION
     Route: 048
     Dates: start: 20060131, end: 20060309
  2. AZT [Concomitant]
     Indication: HIV INFECTION
     Dates: start: 20060131, end: 20060309
  3. IRON [Concomitant]
     Indication: PREGNANCY
     Dates: start: 20060131
  4. KRAUTERBLUT [Concomitant]
     Dates: start: 20060131

REACTIONS (2)
  - PREMATURE BABY [None]
  - PREMATURE LABOUR [None]
